FAERS Safety Report 21561486 (Version 1)
Quarter: 2022Q4

REPORT INFORMATION
  Report Type: Spontaneous
  Country: KW (occurrence: KW)
  Receive Date: 20221107
  Receipt Date: 20221107
  Transmission Date: 20230113
  Serious: Yes (Other)
  Sender: FDA-Public Use
  Company Number: KW-JNJFOC-20221060371

PATIENT
  Age: 19 Year
  Sex: Male

DRUGS (1)
  1. STELARA [Suspect]
     Active Substance: USTEKINUMAB
     Indication: Crohn^s disease
     Dosage: INDUCTION DOSE
     Route: 040

REACTIONS (2)
  - Hyperbilirubinaemia [Unknown]
  - Drug ineffective [Unknown]
